FAERS Safety Report 20178580 (Version 1)
Quarter: 2021Q4

REPORT INFORMATION
  Report Type: Spontaneous
  Country: US (occurrence: US)
  Receive Date: 20211214
  Receipt Date: 20211214
  Transmission Date: 20220304
  Serious: Yes (Other)
  Sender: FDA-Public Use
  Company Number: US-ENDO PHARMACEUTICALS INC-2021-013380

PATIENT
  Age: 18 Year
  Sex: Female

DRUGS (1)
  1. MINOCYCLINE HYDROCHLORIDE [Suspect]
     Active Substance: MINOCYCLINE HYDROCHLORIDE
     Indication: Acne
     Dosage: 100 MG, OD
     Route: 065

REACTIONS (2)
  - Polyarteritis nodosa [Recovered/Resolved]
  - Systemic lupus erythematosus [Recovered/Resolved]
